FAERS Safety Report 6101639-8 (Version None)
Quarter: 2009Q1

REPORT INFORMATION
  Report Type: 
  Country: None (occurrence: None)
  Receive Date: 20090303
  Receipt Date: 20090303
  Transmission Date: 20090719
  Serious: No
  Sender: FDA-Public Use
  Company Number: None

PATIENT
  Age: 17 Month
  Sex: Male
  Weight: 10.8863 kg

DRUGS (1)
  1. SINGULAIR [Suspect]
     Indication: ASTHMA
     Dosage: 4MG DAILY PO
     Route: 048
     Dates: start: 20090201, end: 20090216

REACTIONS (3)
  - ABNORMAL BEHAVIOUR [None]
  - DIZZINESS [None]
  - FALL [None]
